FAERS Safety Report 7636256-1 (Version None)
Quarter: 2011Q3

REPORT INFORMATION
  Report Type: 
  Country: None (occurrence: None)
  Receive Date: 20110726
  Receipt Date: 20110719
  Transmission Date: 20111222
  Serious: Yes (Other)
  Sender: FDA-Public Use
  Company Number: US-B.I. PHARMACEUTICALS,INC./RIDGEFIELD-2011-BP-18090BP

PATIENT
  Age: 70 Year
  Sex: Female

DRUGS (1)
  1. CATAPRES-TTS-1 [Suspect]
     Route: 061

REACTIONS (6)
  - DIZZINESS [None]
  - DRUG INEFFECTIVE [None]
  - ABDOMINAL DISCOMFORT [None]
  - HEADACHE [None]
  - CEREBROVASCULAR ACCIDENT [None]
  - MALAISE [None]
